FAERS Safety Report 8051922-4 (Version None)
Quarter: 2012Q1

REPORT INFORMATION
  Report Type: 
  Country: None (occurrence: None)
  Receive Date: 20120111
  Receipt Date: 20120104
  Transmission Date: 20120608
  Serious: Yes (Disabling)
  Sender: FDA-Public Use
  Company Number: AUR-APL-2011-03996

PATIENT
  Age: 65 Year
  Sex: Male
  Weight: 73 kg

DRUGS (4)
  1. ASPIRIN [Concomitant]
  2. FINASTERIDE [Concomitant]
  3. SIMVASTATIN [Suspect]
     Indication: TRANSIENT ISCHAEMIC ATTACK
     Dosage: 40 MG (40 MG, 1 IN 1 D), ORAL
     Route: 048
     Dates: start: 20090325, end: 20100729
  4. TAMSULOSIN HCL [Concomitant]

REACTIONS (5)
  - GAIT DISTURBANCE [None]
  - PARKINSONISM [None]
  - DYSPHAGIA [None]
  - FLAT AFFECT [None]
  - LETHARGY [None]
